FAERS Safety Report 5476269-1 (Version None)
Quarter: 2007Q4

REPORT INFORMATION
  Report Type: 
  Country: None (occurrence: None)
  Receive Date: 20071003
  Receipt Date: 20070921
  Transmission Date: 20080405
  Serious: Yes (Other)
  Sender: FDA-Public Use
  Company Number: US-PFIZER INC-2007080691

PATIENT
  Sex: Male

DRUGS (11)
  1. CHANTIX [Suspect]
     Indication: EX-SMOKER
  2. MORPHINE [Interacting]
  3. LITHIUM CARBONATE [Concomitant]
  4. EFFEXOR [Concomitant]
  5. BACLOFEN [Concomitant]
  6. VALIUM [Concomitant]
  7. BUSPAR [Concomitant]
  8. TRAZODONE HCL [Concomitant]
  9. ACIPHEX [Concomitant]
  10. ALBUTEROL [Concomitant]
  11. SPIRIVA [Concomitant]

REACTIONS (4)
  - DRUG INTERACTION [None]
  - DRY MOUTH [None]
  - NASAL CONGESTION [None]
  - POLLAKIURIA [None]
